FAERS Safety Report 7611793-4 (Version None)
Quarter: 2011Q3

REPORT INFORMATION
  Report Type: 
  Country: None (occurrence: None)
  Receive Date: 20110715
  Receipt Date: 20110711
  Transmission Date: 20111222
  Serious: Yes (Other)
  Sender: FDA-Public Use
  Company Number: US-PFIZER INC-2011156237

PATIENT
  Sex: Male
  Weight: 63.5 kg

DRUGS (6)
  1. BENADRYL [Suspect]
     Indication: RASH
     Dosage: UNK
  2. NEURONTIN [Suspect]
     Indication: MOOD SWINGS
     Dosage: UNK
     Dates: start: 20110701
  3. LAMICTAL [Suspect]
     Indication: MOOD SWINGS
     Dosage: UNK
     Dates: start: 20101101, end: 20110601
  4. BENADRYL [Suspect]
     Indication: PRURITUS
  5. NEURONTIN [Suspect]
     Indication: BIPOLAR DISORDER
  6. WELLBUTRIN [Concomitant]
     Dosage: 100 MG

REACTIONS (7)
  - FEELING ABNORMAL [None]
  - BLISTER [None]
  - RASH [None]
  - PRURITUS [None]
  - PAIN [None]
  - DIARRHOEA [None]
  - DEPRESSION [None]
